FAERS Safety Report 6862242-5 (Version None)
Quarter: 2010Q3

REPORT INFORMATION
  Report Type: 
  Country: None (occurrence: None)
  Receive Date: 20100721
  Receipt Date: 20100714
  Transmission Date: 20110219
  Serious: Yes (Disabling)
  Sender: FDA-Public Use
  Company Number: GB-TEVA-235121ISR

PATIENT
  Age: 96 Year
  Sex: Female

DRUGS (2)
  1. CLARITHROMYCIN [Suspect]
     Indication: INFECTED SKIN ULCER
     Route: 048
     Dates: start: 20100419
  2. FENTANYL CITRATE [Suspect]
     Indication: PAIN
     Route: 062

REACTIONS (3)
  - DEPRESSED LEVEL OF CONSCIOUSNESS [None]
  - DRUG INTERACTION [None]
  - SOMNOLENCE [None]
